FAERS Safety Report 16338326 (Version 1)
Quarter: 2019Q2

REPORT INFORMATION
  Report Type: Spontaneous
  Country: US (occurrence: US)
  Receive Date: 20190521
  Receipt Date: 20190521
  Transmission Date: 20190711
  Serious: Yes (Other)
  Sender: FDA-Public Use
  Company Number: US-BAYER-2019-096157

PATIENT
  Age: 64 Year
  Sex: Female
  Weight: 65.76 kg

DRUGS (1)
  1. BAYER LOW DOSE [Suspect]
     Active Substance: ASPIRIN
     Dosage: UNK

REACTIONS (6)
  - Melaena [Recovered/Resolved]
  - Impaired gastric emptying [None]
  - Gastrointestinal ulcer [Unknown]
  - Diarrhoea [Recovered/Resolved]
  - Acute kidney injury [None]
  - Blood potassium increased [None]

NARRATIVE: CASE EVENT DATE: 201802
